FAERS Safety Report 8776373 (Version 1)
Quarter: 2012Q4

REPORT INFORMATION
  Report Type: 
  Country: US (occurrence: US)
  Receive Date: 20120910
  Receipt Date: 20120910
  Transmission Date: 20130627
  Serious: Yes (Hospitalization, Other)
  Sender: FDA-Public Use
  Company Number: US-PFIZER INC-2012220912

PATIENT
  Age: 53 Year
  Sex: Male
  Weight: 78.46 kg

DRUGS (4)
  1. LYRICA [Suspect]
     Indication: NEURALGIA
     Dosage: 100 mg, 3x/day
     Route: 048
     Dates: start: 2012
  2. DILAUDID [Concomitant]
     Dosage: UNK
  3. FLEXERIL [Concomitant]
     Dosage: UNK
  4. PREVACID [Concomitant]
     Dosage: UNK

REACTIONS (2)
  - Intervertebral disc calcification [Unknown]
  - Dyskinesia [Not Recovered/Not Resolved]
